FAERS Safety Report 6039942-2 (Version None)
Quarter: 2009Q1

REPORT INFORMATION
  Report Type: 
  Country: None (occurrence: None)
  Receive Date: 20090116
  Receipt Date: 20080407
  Transmission Date: 20090719
  Serious: Yes (Disabling)
  Sender: FDA-Public Use
  Company Number: US-BRISTOL-MYERS SQUIBB COMPANY-13930128

PATIENT
  Age: 14 Year
  Sex: Male

DRUGS (4)
  1. ABILIFY [Suspect]
     Indication: AUTISM SPECTRUM DISORDER
     Dosage: THERAPY DURATION- 3YEARS 5 MONTHS.
     Route: 048
     Dates: start: 20040403, end: 20070914
  2. ABILIFY [Suspect]
     Indication: AGITATION
     Dosage: THERAPY DURATION- 3YEARS 5 MONTHS.
     Route: 048
     Dates: start: 20040403, end: 20070914
  3. ABILIFY [Suspect]
     Indication: AFFECTIVE DISORDER
     Dosage: THERAPY DURATION- 3YEARS 5 MONTHS.
     Route: 048
     Dates: start: 20040403, end: 20070914
  4. FLUOXETINE HCL [Suspect]
     Dosage: THERAPY DURATION- 2YEARS 6 MONTHS.
     Route: 048
     Dates: start: 20050301, end: 20070922

REACTIONS (2)
  - DYSKINESIA [None]
  - SPEECH DISORDER [None]
